FAERS Safety Report 10932660 (Version 1)
Quarter: 2015Q1

REPORT INFORMATION
  Report Type: Spontaneous
  Country: US (occurrence: None)
  Receive Date: 20150319
  Receipt Date: 20150319
  Transmission Date: 20150721
  Serious: No
  Sender: FDA-Public Use
  Company Number: None

PATIENT
  Age: 58 Year
  Sex: Male
  Weight: 95.9 kg

DRUGS (1)
  1. PRASUGREL [Suspect]
     Active Substance: PRASUGREL
     Indication: CARDIOVASCULAR DISORDER
     Route: 048
     Dates: start: 20130121

REACTIONS (1)
  - Rash [None]

NARRATIVE: CASE EVENT DATE: 20130125
